FAERS Safety Report 9210699 (Version 1)
Quarter: 2013Q2

REPORT INFORMATION
  Report Type: Spontaneous
  Country: US (occurrence: US)
  Receive Date: 20130404
  Receipt Date: 20130404
  Transmission Date: 20140414
  Serious: No
  Sender: FDA-Public Use
  Company Number: US-PFIZER INC-2013105071

PATIENT
  Age: 38 Year
  Sex: Female
  Weight: 58.96 kg

DRUGS (2)
  1. ADVIL COLD AND SINUS [Suspect]
     Indication: RHINORRHOEA
     Dosage: UNK, ONCE A DAY
     Route: 048
     Dates: start: 20130401
  2. ADVIL COLD AND SINUS [Suspect]
     Indication: NASAL CONGESTION

REACTIONS (1)
  - Foreign body [Unknown]
